FAERS Safety Report 8134232-6 (Version None)
Quarter: 2012Q1

REPORT INFORMATION
  Report Type: 
  Country: None (occurrence: None)
  Receive Date: 20120201
  Receipt Date: 20120113
  Transmission Date: 20120608
  Serious: Yes (Hospitalization)
  Sender: FDA-Public Use
  Company Number: 2011030585

PATIENT
  Sex: Female
  Weight: 66.8 kg

DRUGS (3)
  1. PRIVIGEN [Suspect]
  2. PRIVIGEN [Suspect]
     Indication: CHRONIC INFLAMMATORY DEMYELINATING POLYRADICULONEUROPATHY
     Dosage: SEE IMAGE
     Route: 042
     Dates: start: 20111205, end: 20111206
  3. PRIVIGEN [Suspect]
     Indication: CHRONIC INFLAMMATORY DEMYELINATING POLYRADICULONEUROPATHY
     Dosage: SEE IMAGE
     Route: 042
     Dates: start: 20111205, end: 20111206

REACTIONS (2)
  - HAEMOLYSIS [None]
  - ANAEMIA [None]
